FAERS Safety Report 6590550-4 (Version None)
Quarter: 2010Q1

REPORT INFORMATION
  Report Type: 
  Country: None (occurrence: None)
  Receive Date: 20100219
  Receipt Date: 20100208
  Transmission Date: 20100710
  Serious: Yes (Other)
  Sender: FDA-Public Use
  Company Number: DE-PFIZER INC-2010004268

PATIENT
  Age: 68 Year
  Sex: Male
  Weight: 93 kg

DRUGS (2)
  1. VIAGRA [Suspect]
     Dosage: UNK
     Dates: start: 20070101
  2. ASPIRIN [Concomitant]
     Indication: HAEMODILUTION

REACTIONS (4)
  - DRUG INEFFECTIVE [None]
  - MICTURITION URGENCY [None]
  - PENILE SWELLING [None]
  - RENAL PAIN [None]
